FAERS Safety Report 5743716-7 (Version None)
Quarter: 2008Q2

REPORT INFORMATION
  Report Type: 
  Country: None (occurrence: None)
  Receive Date: 20080520
  Receipt Date: 20080509
  Transmission Date: 20081010
  Serious: Yes (Hospitalization)
  Sender: FDA-Public Use
  Company Number: US-JNJFOC-20080502309

PATIENT
  Sex: Male
  Weight: 102.06 kg

DRUGS (8)
  1. REMICADE [Suspect]
     Indication: CROHN'S DISEASE
     Route: 042
  2. SULFASALAZINE [Concomitant]
     Indication: CROHN'S DISEASE
     Dosage: 2-500 MG
  3. BENTYL [Concomitant]
     Indication: MUSCLE SPASMS
  4. BENTYL [Concomitant]
  5. BENTYL [Concomitant]
     Indication: CROHN'S DISEASE
  6. NEXIUM [Concomitant]
     Indication: DYSPEPSIA
  7. PREDNISON [Concomitant]
  8. VICODIN [Concomitant]

REACTIONS (2)
  - EYE DISORDER [None]
  - HOSPITALISATION [None]
